FAERS Safety Report 22334723 (Version 1)
Quarter: 2023Q2

REPORT INFORMATION
  Report Type: Spontaneous
  Country: US (occurrence: None)
  Receive Date: 20230517
  Receipt Date: 20230517
  Transmission Date: 20230721
  Serious: No
  Sender: FDA-Public Use
  Company Number: US-ROCHE-3128009

PATIENT
  Sex: Female

DRUGS (13)
  1. ACTEMRA [Suspect]
     Active Substance: TOCILIZUMAB
     Indication: Takayasu^s arteritis
     Dosage: (162MG 0.9ML)
     Route: 058
     Dates: start: 20200410
  2. ACTEMRA [Suspect]
     Active Substance: TOCILIZUMAB
  3. ATORVASTATIN [Concomitant]
     Active Substance: ATORVASTATIN
  4. CALCIUM [Concomitant]
     Active Substance: CALCIUM
  5. BENZONATATE [Concomitant]
     Active Substance: BENZONATATE
  6. BUPROPION HYDROCHLORIDE [Concomitant]
     Active Substance: BUPROPION HYDROCHLORIDE
  7. ESCITALOPRAM OXALATE [Concomitant]
     Active Substance: ESCITALOPRAM OXALATE
  8. METHYLPREDNISOLONE [Concomitant]
     Active Substance: METHYLPREDNISOLONE
  9. OMEPRAZOLE [Concomitant]
     Active Substance: OMEPRAZOLE
  10. OXYCODONE AND ACETAMINOPHEN [Concomitant]
     Active Substance: ACETAMINOPHEN\OXYCODONE HYDROCHLORIDE
  11. TOPIRAMATE [Concomitant]
     Active Substance: TOPIRAMATE
  12. VALACYCLOVIR HYDROCHLORIDE [Concomitant]
     Active Substance: VALACYCLOVIR HYDROCHLORIDE
  13. VIBERZI [Concomitant]
     Active Substance: ELUXADOLINE

REACTIONS (2)
  - Off label use [Unknown]
  - No adverse event [Unknown]
